FAERS Safety Report 9486921 (Version 1)
Quarter: 2013Q3

REPORT INFORMATION
  Report Type: Spontaneous
  Country: US (occurrence: None)
  Receive Date: 20130827
  Receipt Date: 20130827
  Transmission Date: 20140515
  Serious: Yes (Other)
  Sender: FDA-Public Use
  Company Number: 2013P1018532

PATIENT
  Age: 73 Year
  Sex: Female

DRUGS (1)
  1. MODAFINIL [Suspect]
     Indication: FATIGUE

REACTIONS (2)
  - Stress cardiomyopathy [None]
  - Hypotension [None]
